FAERS Safety Report 23820625 (Version 4)
Quarter: 2025Q1

REPORT INFORMATION
  Report Type: Report from Study
  Country: JP (occurrence: JP)
  Receive Date: 20240506
  Receipt Date: 20250107
  Transmission Date: 20250409
  Serious: Yes (Hospitalization, Other)
  Sender: ABBVIE
  Company Number: JP-JNJFOC-20240467467

PATIENT
  Age: 83 Year
  Sex: Male
  Weight: 55.6 kg

DRUGS (42)
  1. LEUPROLIDE ACETATE [Suspect]
     Active Substance: LEUPROLIDE ACETATE
     Indication: Product used for unknown indication
     Dosage: LEUPRORELIN ACETATE,3.75 MILLIGRAM, Q4WEEKS
     Route: 065
     Dates: end: 20231012
  2. DECADRON [Suspect]
     Active Substance: DEXAMETHASONE
     Indication: Plasma cell myeloma
     Dosage: 20 MILLIGRAM, 1/WEEK
     Route: 048
     Dates: start: 20230824, end: 20231012
  3. TAPENTADOL HYDROCHLORIDE [Suspect]
     Active Substance: TAPENTADOL HYDROCHLORIDE
     Indication: Pain in extremity
     Dosage: TAPENTADOL HYDROCHLORIDE:25MG OTHER INDICATION:CANCER PAIN, PAIN IN EXTREMITY, PAIN IN EXTREMITY
     Route: 048
     Dates: start: 20230914, end: 20230927
  4. TAPENTADOL HYDROCHLORIDE [Suspect]
     Active Substance: TAPENTADOL HYDROCHLORIDE
     Indication: Pain in extremity
     Dosage: 100 MILLIGRAM, QD
     Route: 048
     Dates: start: 20231003
  5. TAPENTADOL HYDROCHLORIDE [Suspect]
     Active Substance: TAPENTADOL HYDROCHLORIDE
     Indication: Pain in extremity
     Dosage: 150 MILLIGRAM, QD
     Route: 048
     Dates: start: 20230928, end: 20231002
  6. TAPENTADOL HYDROCHLORIDE [Suspect]
     Active Substance: TAPENTADOL HYDROCHLORIDE
     Indication: Pain in extremity
  7. OXYCODONE HYDROCHLORIDE [Suspect]
     Active Substance: OXYCODONE HYDROCHLORIDE
     Indication: Spinal compression fracture
     Route: 048
     Dates: start: 20230911
  8. OXYCODONE HYDROCHLORIDE [Suspect]
     Active Substance: OXYCODONE HYDROCHLORIDE
     Indication: Spinal compression fracture
     Route: 048
     Dates: start: 20230901, end: 20230910
  9. OXYCODONE HYDROCHLORIDE [Suspect]
     Active Substance: OXYCODONE HYDROCHLORIDE
     Indication: Spinal compression fracture
     Route: 048
  10. PENTAMIDINE [Concomitant]
     Active Substance: PENTAMIDINE
     Indication: Pneumocystis jirovecii pneumonia
     Dosage: PENTAMIDINE ISETIONATE
     Route: 065
     Dates: start: 20231030, end: 20231110
  11. AMLODIPINE [Suspect]
     Active Substance: AMLODIPINE BESYLATE
     Indication: Product used for unknown indication
     Dosage: 5 MILLIGRAM, QD
     Route: 048
     Dates: start: 2023, end: 20230901
  12. AMLODIPINE [Suspect]
     Active Substance: AMLODIPINE BESYLATE
     Indication: Product used for unknown indication
     Dosage: 5 MILLIGRAM, QD
     Route: 048
     Dates: start: 2023, end: 20231001
  13. SOLDEM 3A [Concomitant]
     Active Substance: CARBOHYDRATES\POTASSIUM CHLORIDE\SODIUM CHLORIDE\SODIUM LACTATE
     Indication: Decreased appetite
     Dosage: MAINTENANCE MEDIUM
     Route: 065
     Dates: start: 20231001, end: 20231005
  14. MEROPENEM [Concomitant]
     Active Substance: MEROPENEM
     Indication: Pyrexia
     Dosage: MEROPENEM HYDRATE
     Route: 042
     Dates: start: 20231017, end: 20231029
  15. ENTRESTO [Suspect]
     Active Substance: SACUBITRIL\VALSARTAN
     Indication: Product used for unknown indication
     Dosage: 400 MILLIGRAM, QD
     Route: 048
     Dates: start: 2023, end: 20231001
  16. FROZEN THAWED RED BLOOD CELLS [Concomitant]
     Indication: Anaemia
     Route: 065
     Dates: start: 20231009, end: 20231009
  17. FROZEN THAWED RED BLOOD CELLS [Concomitant]
     Indication: Anaemia
     Route: 065
     Dates: start: 20231109, end: 20231109
  18. FROZEN THAWED RED BLOOD CELLS [Concomitant]
     Indication: Anaemia
     Route: 065
     Dates: start: 20230919, end: 20230919
  19. HUMAN RED BLOOD CELL [Concomitant]
     Active Substance: HUMAN RED BLOOD CELL
     Indication: Anaemia
     Dosage: UNK UNK, QD
     Route: 065
     Dates: start: 20230919, end: 20230919
  20. HUMAN RED BLOOD CELL [Concomitant]
     Active Substance: HUMAN RED BLOOD CELL
     Indication: Anaemia
     Dosage: UNK UNK, QD
     Route: 065
     Dates: start: 20231009, end: 20231009
  21. HUMAN RED BLOOD CELL [Concomitant]
     Active Substance: HUMAN RED BLOOD CELL
     Indication: Anaemia
     Dosage: UNK UNK, QD
     Route: 065
     Dates: start: 20231109, end: 20231109
  22. BORTEZOMIB [Suspect]
     Active Substance: BORTEZOMIB
     Indication: Plasma cell myeloma
     Route: 065
     Dates: start: 20230824, end: 20231005
  23. OXYCODONE HYDROCHLORIDE [Suspect]
     Active Substance: OXYCODONE HYDROCHLORIDE
     Indication: Spinal compression fracture
     Route: 048
     Dates: start: 20230908, end: 20230913
  24. OXYCODONE HYDROCHLORIDE [Suspect]
     Active Substance: OXYCODONE HYDROCHLORIDE
     Indication: Spinal compression fracture
  25. OXYCODONE HYDROCHLORIDE [Suspect]
     Active Substance: OXYCODONE HYDROCHLORIDE
     Indication: Spinal compression fracture
     Route: 048
  26. DARATUMUMAB [Suspect]
     Active Substance: DARATUMUMAB
     Indication: Plasma cell myeloma
     Dosage: 1800 MILLIGRAM, QD
     Route: 058
     Dates: start: 20230907, end: 20230907
  27. DARATUMUMAB [Suspect]
     Active Substance: DARATUMUMAB
     Indication: Plasma cell myeloma
     Dosage: 1800 MILLIGRAM, QD
     Route: 058
     Dates: start: 20230928, end: 20230928
  28. DARATUMUMAB [Suspect]
     Active Substance: DARATUMUMAB
     Indication: Plasma cell myeloma
     Dosage: 1800 MILLIGRAM?DARATUMUMAB (GENETICAL RECOMBINATION)/VORHYALURONIDASE ALFA
     Route: 058
     Dates: start: 20230824, end: 20230824
  29. DARATUMUMAB [Suspect]
     Active Substance: DARATUMUMAB
     Indication: Plasma cell myeloma
     Dosage: 1800 MILLIGRAM, QD
     Route: 058
     Dates: start: 20230921, end: 20230921
  30. DARATUMUMAB [Suspect]
     Active Substance: DARATUMUMAB
     Indication: Plasma cell myeloma
     Dosage: 1800 MILLIGRAM, QD
     Route: 058
     Dates: start: 20231005, end: 20231005
  31. DARATUMUMAB [Suspect]
     Active Substance: DARATUMUMAB
     Indication: Plasma cell myeloma
     Dosage: 1800 MILLIGRAM, QD
     Route: 058
     Dates: start: 20230914, end: 20230914
  32. DARATUMUMAB [Suspect]
     Active Substance: DARATUMUMAB
     Indication: Plasma cell myeloma
     Dosage: 1800 MILLIGRAM, QD
     Route: 058
     Dates: start: 20230831, end: 20230831
  33. DARATUMUMAB [Suspect]
     Active Substance: DARATUMUMAB
     Indication: Plasma cell myeloma
     Dosage: 1800 MILLIGRAM, QD
     Route: 058
     Dates: start: 20231012, end: 20231012
  34. AMINO ACIDS\DEXTROSE\ELECTROLYTES NOS\VITAMINS [Concomitant]
     Active Substance: AMINO ACIDS\DEXTROSE\ELECTROLYTES NOS\VITAMINS
     Indication: Decreased appetite
     Dosage: MIXED AMINO ACID/CARBOHYDRATE/ELECTROLYTE/VITAMIN COMBINED DRUG
     Route: 065
     Dates: start: 20231006
  35. NOREPINEPHRINE BITARTRATE [Concomitant]
     Active Substance: NOREPINEPHRINE BITARTRATE
     Indication: Blood pressure decreased
     Dosage: 5 MILLIGRAM, QD
     Route: 065
     Dates: start: 20231016, end: 20231016
  36. NOREPINEPHRINE BITARTRATE [Concomitant]
     Active Substance: NOREPINEPHRINE BITARTRATE
     Indication: Blood pressure decreased
     Dosage: NORADRENALINE
     Route: 065
     Dates: start: 20231001, end: 20231001
  37. MICAFUNGIN SODIUM [Concomitant]
     Active Substance: MICAFUNGIN SODIUM
     Indication: Pyrexia
     Dosage: MICAFUNGIN SODIUM
     Route: 042
     Dates: start: 20231026, end: 20231103
  38. HUMAN RED BLOOD CELL [Concomitant]
     Active Substance: HUMAN RED BLOOD CELL
     Indication: Anaemia
     Dosage: UNK, QD
     Route: 065
     Dates: start: 20231109, end: 20231109
  39. HUMAN RED BLOOD CELL [Concomitant]
     Active Substance: HUMAN RED BLOOD CELL
     Indication: Anaemia
     Dosage: UNK, QD
     Route: 065
     Dates: start: 20231009, end: 20231009
  40. HUMAN RED BLOOD CELL [Concomitant]
     Active Substance: HUMAN RED BLOOD CELL
     Indication: Anaemia
     Dosage: UNK, QD
     Route: 065
     Dates: start: 20230919, end: 20230919
  41. PIPERACILLIN AND TAZOBACTAM [Concomitant]
     Active Substance: PIPERACILLIN SODIUM\TAZOBACTAM SODIUM
     Indication: Pyrexia
     Dosage: 13.5 GRAM, QD
     Route: 042
     Dates: start: 20231030, end: 20231110
  42. PIPERACILLIN SODIUM\TAZOBACTAM SODIUM [Concomitant]
     Active Substance: PIPERACILLIN SODIUM\TAZOBACTAM SODIUM
     Indication: Pyrexia
     Route: 042
     Dates: start: 20231030, end: 20231110

REACTIONS (10)
  - Pneumocystis jirovecii pneumonia [Recovered/Resolved]
  - Anaemia [Recovered/Resolved]
  - C-reactive protein increased [Recovered/Resolved]
  - White blood cell count decreased [Recovered/Resolved]
  - Platelet count decreased [Recovered/Resolved]
  - Pyrexia [Recovered/Resolved]
  - Blood pressure decreased [Recovered/Resolved]
  - Somnolence [Not Recovered/Not Resolved]
  - Decreased appetite [Not Recovered/Not Resolved]
  - Delirium [Recovering/Resolving]

NARRATIVE: CASE EVENT DATE: 20230826
